FAERS Safety Report 17896298 (Version 2)
Quarter: 2020Q2

REPORT INFORMATION
  Report Type: Spontaneous
  Country: CA (occurrence: CA)
  Receive Date: 20200615
  Receipt Date: 20200616
  Transmission Date: 20200714
  Serious: Yes (Other)
  Sender: FDA-Public Use
  Company Number: CA-PFIZER INC-2018224619

PATIENT
  Age: 78 Year
  Sex: Female

DRUGS (4)
  1. IBRANCE [Suspect]
     Active Substance: PALBOCICLIB
     Dosage: 125 MG, UNK
     Dates: start: 20170824, end: 201804
  2. IBRANCE [Suspect]
     Active Substance: PALBOCICLIB
     Indication: BREAST CANCER METASTATIC
     Dosage: 125 MG, UNK
     Dates: start: 20170915, end: 201804
  3. IBRANCE [Suspect]
     Active Substance: PALBOCICLIB
     Dosage: 100 MG, CYCLIC (DAILY FOR 21 DAYS, FOLLOWED BY 7 DAYS OFF).
     Route: 048
     Dates: start: 201804
  4. LETROZOLE. [Concomitant]
     Active Substance: LETROZOLE
     Dosage: UNK

REACTIONS (9)
  - Pulmonary fibrosis [Unknown]
  - Constipation [Unknown]
  - Diverticulum intestinal [Unknown]
  - Bronchiectasis [Unknown]
  - Spondylolisthesis [Unknown]
  - Platelet count decreased [Unknown]
  - Hot flush [Unknown]
  - Hiatus hernia [Unknown]
  - Ankylosing spondylitis [Unknown]
